FAERS Safety Report 25941219 (Version 1)
Quarter: 2025Q4

REPORT INFORMATION
  Report Type: Spontaneous
  Country: US (occurrence: US)
  Receive Date: 20251020
  Receipt Date: 20251020
  Transmission Date: 20260117
  Serious: Yes (Other)
  Sender: COOPERSURGICAL
  Company Number: US-COOPERSURGICAL, INC.-2025CPS007342

PATIENT
  Age: 44 Year
  Sex: Female
  Weight: 90.703 kg

DRUGS (1)
  1. PARAGARD T 380A [Suspect]
     Active Substance: COPPER
     Indication: Contraception
     Dosage: UNK
     Route: 015
     Dates: start: 20140101

REACTIONS (27)
  - Surgery [Recovered/Resolved]
  - Salpingectomy [Recovered/Resolved]
  - Uterine polyp [Recovered/Resolved]
  - Reproductive complication associated with device [Unknown]
  - Device breakage [Recovered/Resolved]
  - Foreign body in reproductive tract [Recovered/Resolved]
  - Complication of device removal [Recovered/Resolved]
  - Embedded device [Recovered/Resolved]
  - Uterine perforation [Recovered/Resolved]
  - Fallopian tube disorder [Recovered/Resolved]
  - Fallopian tube adhesion [Recovered/Resolved]
  - Pelvic adhesions [Recovered/Resolved]
  - Libido decreased [Unknown]
  - Complication associated with device [Recovered/Resolved]
  - Uterine enlargement [Unknown]
  - Uterine scar [Unknown]
  - Device material issue [Recovered/Resolved]
  - Intermenstrual bleeding [Unknown]
  - Back pain [Recovered/Resolved]
  - Dysmenorrhoea [Unknown]
  - Nausea [Unknown]
  - Pelvic pain [Unknown]
  - Heavy menstrual bleeding [Unknown]
  - Menstruation irregular [Unknown]
  - Device dislocation [Recovered/Resolved]
  - Muscle spasms [Unknown]
  - Pain [Recovered/Resolved]

NARRATIVE: CASE EVENT DATE: 20140901
